FAERS Safety Report 21551118 (Version 1)
Quarter: 2022Q4

REPORT INFORMATION
  Report Type: Spontaneous
  Country: US (occurrence: None)
  Receive Date: 20221102
  Receipt Date: 20221102
  Transmission Date: 20230112
  Serious: No
  Sender: FDA-Public Use
  Company Number: None

PATIENT
  Sex: Female

DRUGS (1)
  1. TREMFYA [Suspect]
     Active Substance: GUSELKUMAB
     Indication: Psoriatic arthropathy
     Dosage: OTHER FREQUENCY :  0,4, 8 WEEKS;?
     Route: 058
     Dates: start: 20220816

REACTIONS (4)
  - Therapeutic product effect decreased [None]
  - Peripheral swelling [None]
  - Arthralgia [None]
  - Pain in extremity [None]
